FAERS Safety Report 16660738 (Version 3)
Quarter: 2019Q3

REPORT INFORMATION
  Report Type: Spontaneous
  Country: US (occurrence: US)
  Receive Date: 20190802
  Receipt Date: 20190813
  Transmission Date: 20191004
  Serious: Yes (Hospitalization, Other)
  Sender: FDA-Public Use
  Company Number: US-PFIZER INC-2019328142

PATIENT
  Age: 52 Year
  Sex: Male

DRUGS (5)
  1. NOVOCAIN [Suspect]
     Active Substance: PROCAINE HYDROCHLORIDE
     Indication: LOCAL ANAESTHESIA
     Dosage: 3 ML, UNK
  2. NOVOCAIN [Suspect]
     Active Substance: PROCAINE HYDROCHLORIDE
     Dosage: UNK
  3. BORIC ACID [Suspect]
     Active Substance: BORIC ACID
     Dosage: UNK
  4. EPINEPHRINE. [Suspect]
     Active Substance: EPINEPHRINE
     Indication: LOCAL ANAESTHESIA
     Dosage: UNK (INJECTION) 3 CC
  5. EPINEPHRINE. [Suspect]
     Active Substance: EPINEPHRINE
     Indication: PARONYCHIA

REACTIONS (2)
  - Gangrene [Recovered/Resolved]
  - Extremity necrosis [Unknown]
